FAERS Safety Report 6447653-4 (Version None)
Quarter: 2009Q4

REPORT INFORMATION
  Report Type: 
  Country: None (occurrence: None)
  Receive Date: 20091120
  Receipt Date: 20091116
  Transmission Date: 20100525
  Serious: Yes (Other)
  Sender: FDA-Public Use
  Company Number: GB-RANBAXY-2009RR-29311

PATIENT
  Age: 62 Year
  Sex: Male

DRUGS (3)
  1. PARACETAMOL [Suspect]
  2. RISPERDAL CONSTA [Suspect]
     Indication: SCHIZOPHRENIA
     Dosage: 75 MG, UNK
     Dates: start: 20060526, end: 20070514
  3. CHLORPROMAZINE [Concomitant]
     Indication: PARKINSONISM
     Dosage: 200 MG, PRN

REACTIONS (4)
  - DECREASED APPETITE [None]
  - OVERDOSE [None]
  - VOMITING [None]
  - WEIGHT DECREASED [None]
